FAERS Safety Report 6696146-8 (Version None)
Quarter: 2010Q2

REPORT INFORMATION
  Report Type: 
  Country: None (occurrence: None)
  Receive Date: 20100426
  Receipt Date: 20100421
  Transmission Date: 20101027
  Serious: Yes (Death, Hospitalization, Other)
  Sender: FDA-Public Use
  Company Number: US-ASTRAZENECA-2010SE15394

PATIENT
  Age: 84 Year
  Sex: Female
  Weight: 59 kg

DRUGS (19)
  1. OMEPRAZOLE [Suspect]
     Indication: HELICOBACTER INFECTION
     Route: 048
     Dates: start: 20100308, end: 20100318
  2. OMEPRAZOLE [Suspect]
     Indication: GASTRIC ULCER
     Route: 048
     Dates: start: 20100308, end: 20100318
  3. ULORIC [Suspect]
     Indication: GOUT
     Route: 048
     Dates: start: 20100310
  4. AMOXICILLIN [Suspect]
     Indication: HELICOBACTER INFECTION
     Dates: start: 20100310, end: 20100318
  5. AMOXICILLIN [Suspect]
     Indication: GASTRIC ULCER
     Dates: start: 20100310, end: 20100318
  6. BIAXIN [Suspect]
     Indication: HELICOBACTER INFECTION
     Dates: start: 20100310, end: 20100318
  7. COLCHICINE [Suspect]
     Indication: GOUT
     Dates: start: 20100308, end: 20100316
  8. LIDOCAINE [Concomitant]
     Indication: PAIN
  9. TOPROL-XL [Concomitant]
     Indication: HYPERTENSION
     Route: 048
  10. POTASSIUM [Concomitant]
  11. REGLAN [Concomitant]
     Dates: start: 20100318
  12. MULTI-VITAMIN [Concomitant]
  13. VYTRON C [Concomitant]
  14. VICODIN [Concomitant]
     Indication: PAIN
     Route: 048
  15. PEPTO-BISMOL [Concomitant]
     Indication: DIARRHOEA
     Dosage: AS NEEDED
  16. ZOFRAN [Concomitant]
     Indication: NAUSEA
     Route: 042
     Dates: start: 20100317
  17. ZOFRAN [Concomitant]
     Indication: VOMITING
     Route: 042
     Dates: start: 20100317
  18. LASIX [Concomitant]
     Dates: start: 20100301
  19. NEUPOGEN [Concomitant]
     Dates: start: 20100301

REACTIONS (10)
  - ATELECTASIS [None]
  - CARDIO-RESPIRATORY ARREST [None]
  - DEHYDRATION [None]
  - NAUSEA [None]
  - NON-HODGKIN'S LYMPHOMA [None]
  - PANCYTOPENIA [None]
  - PNEUMONIA [None]
  - RENAL FAILURE ACUTE [None]
  - SEPSIS [None]
  - VOMITING [None]
